FAERS Safety Report 8575477-0 (Version None)
Quarter: 2012Q3

REPORT INFORMATION
  Report Type: 
  Country: None (occurrence: None)
  Receive Date: 20120807
  Receipt Date: 20120801
  Transmission Date: 20120928
  Serious: Yes (Death, Other)
  Sender: FDA-Public Use
  Company Number: PHHY2012PL064332

PATIENT
  Sex: Male
  Weight: 68 kg

DRUGS (5)
  1. CALCIUM [Concomitant]
     Dosage: 600 MG, UNK
     Dates: start: 20090818
  2. ZOLEDRONOC ACID [Suspect]
     Indication: METASTASES TO BONE
     Dosage: 4 MG PER 3-4 WEEKS
     Route: 042
     Dates: start: 20090819, end: 20091109
  3. ENOXAPARIN [Concomitant]
     Dosage: 40 MG, UNK
     Dates: start: 20090814
  4. PANTOPRAZOLE [Concomitant]
     Dosage: 20 MG, UNK
     Dates: start: 20090814
  5. PREDNISONE [Concomitant]
     Dosage: 60 MG, UNK
     Dates: start: 20090814

REACTIONS (2)
  - PROSTATE CANCER [None]
  - NEOPLASM PROGRESSION [None]
